FAERS Safety Report 6759245-8 (Version None)
Quarter: 2010Q2

REPORT INFORMATION
  Report Type: 
  Country: None (occurrence: None)
  Receive Date: 20100607
  Receipt Date: 20100526
  Transmission Date: 20101027
  Serious: Yes (Other)
  Sender: FDA-Public Use
  Company Number: CA-PFIZER INC-2010025184

PATIENT
  Age: 42 Year
  Sex: Female
  Weight: 92 kg

DRUGS (7)
  1. NEURONTIN [Suspect]
     Indication: MULTIPLE SCLEROSIS
     Dosage: 1200 MG, 4X/DAY
     Route: 048
     Dates: start: 20000101
  2. ZANAFLEX [Concomitant]
     Indication: MUSCLE SPASTICITY
     Dosage: 4 MG, 2X/DAY
     Dates: start: 20000101
  3. OXYCODONE HCL [Concomitant]
     Indication: PAIN
     Dosage: 20 MG, 4X/DAY
     Dates: start: 20040101
  4. CODEINE CONTIN [Concomitant]
     Indication: PAIN
     Dosage: 150 MG, 3X/DAY
     Dates: start: 20040101
  5. ATIVAN [Concomitant]
     Indication: ANXIETY
     Dosage: 2 -4 MG, AS NEEDED
     Dates: start: 19980101
  6. METFORMIN [Concomitant]
     Indication: DIABETES MELLITUS
     Dosage: 1250 MG, 2X/DAY
     Dates: start: 20070101
  7. BISACODYL [Concomitant]
     Indication: LAXATIVE SUPPORTIVE CARE
     Dosage: 10 MG, 4X/DAY
     Dates: start: 20090101

REACTIONS (2)
  - SWOLLEN TONGUE [None]
  - TOOTH MALFORMATION [None]
